FAERS Safety Report 25381235 (Version 1)
Quarter: 2025Q2

REPORT INFORMATION
  Report Type: Spontaneous
  Country: JP (occurrence: JP)
  Receive Date: 20250530
  Receipt Date: 20250530
  Transmission Date: 20250716
  Serious: Yes (Hospitalization, Other)
  Sender: OTSUKA
  Company Number: JP-MMM-Otsuka-VQB9XYCT

PATIENT
  Age: 7 Decade
  Sex: Male

DRUGS (19)
  1. SAMSCA [Suspect]
     Active Substance: TOLVAPTAN
     Indication: Product used for unknown indication
     Dosage: 7.5 MG/DAY, ONCE DAILY (1T1?)
     Route: 048
  2. CLARITHROMYCIN [Interacting]
     Active Substance: CLARITHROMYCIN
     Indication: Infection prophylaxis
     Dosage: 200 MG, TWICE DAILY (2T2X)
     Route: 048
  3. AMIODARONE HYDROCHLORIDE [Interacting]
     Active Substance: AMIODARONE HYDROCHLORIDE
     Indication: Product used for unknown indication
     Dosage: 100 MG, TWICE DAILY (2T2X)
     Route: 048
  4. GARENOXACIN MESYLATE [Concomitant]
     Active Substance: GARENOXACIN MESYLATE
     Indication: Infection prophylaxis
     Dosage: 200 MG, TWICE DAILY (2T2X)
     Route: 048
  5. TEMOCAPRIL HYDROCHLORIDE [Concomitant]
     Active Substance: TEMOCAPRIL HYDROCHLORIDE
     Indication: Product used for unknown indication
     Dosage: 1 MG, ONCE DAILY (1T1X)
     Route: 048
  6. ESOMEPRAZOLE MAGNESIUM [Concomitant]
     Active Substance: ESOMEPRAZOLE MAGNESIUM
     Indication: Product used for unknown indication
     Dosage: 20 MG, ONCE DAILY (1C1X)
     Route: 048
  7. FUROSEMIDE [Concomitant]
     Active Substance: FUROSEMIDE
     Indication: Product used for unknown indication
     Dosage: 20 MG, ONCE DAILY (1T1X)
     Route: 048
  8. SPIRONOLACTONE [Concomitant]
     Active Substance: SPIRONOLACTONE
     Indication: Product used for unknown indication
     Dosage: 25 MG, ONCE DAILY (1T1X)
     Route: 048
  9. LEVOTHYROXINE SODIUM [Concomitant]
     Active Substance: LEVOTHYROXINE SODIUM
     Indication: Product used for unknown indication
     Dosage: 50 MCG, ONCE DAILY (1T1X)
     Route: 048
  10. LEVOTHYROXINE SODIUM [Concomitant]
     Active Substance: LEVOTHYROXINE SODIUM
     Indication: Product used for unknown indication
     Dosage: 25 MCG, ONCE DAILY (1T1X)
     Route: 048
  11. VERICIGUAT [Concomitant]
     Active Substance: VERICIGUAT
     Indication: Product used for unknown indication
     Dosage: 5 MG, ONCE DAILY (1T1X)
     Route: 048
  12. FEBUXOSTAT [Concomitant]
     Active Substance: FEBUXOSTAT
     Indication: Product used for unknown indication
     Dosage: 20 MG, TWICE DAILY (2T2X)
     Route: 048
  13. BISOPROLOL FUMARATE [Concomitant]
     Active Substance: BISOPROLOL FUMARATE
     Indication: Product used for unknown indication
     Dosage: 5 MG, TWICE DAILY (4T2X)
     Route: 048
  14. BISOPROLOL FUMARATE [Concomitant]
     Active Substance: BISOPROLOL FUMARATE
     Dosage: REDUCED TO 2.5 MG, TWICE DAILY (2T2X)
     Route: 048
  15. ICOSAPENT ETHYL [Concomitant]
     Active Substance: ICOSAPENT ETHYL
     Indication: Product used for unknown indication
     Dosage: 900 MG, TWICE DAILY (2 PACKETS 2X)
     Route: 048
  16. APIXABAN [Concomitant]
     Active Substance: APIXABAN
     Indication: Product used for unknown indication
     Dosage: 5 MG, TWICE DAILY (2T2X)
     Route: 048
  17. FEXOFENADINE HYDROCHLORIDE [Concomitant]
     Active Substance: FEXOFENADINE HYDROCHLORIDE
     Indication: Product used for unknown indication
     Dosage: 60 MG, TWICE DAILY (2T2X)
     Route: 048
  18. ATORVASTATIN CALCIUM [Concomitant]
     Active Substance: ATORVASTATIN CALCIUM
     Indication: Product used for unknown indication
     Dosage: 10 MG, ONCE DAILY (1T1X)
     Route: 048
  19. ZOLPIDEM TARTRATE [Concomitant]
     Active Substance: ZOLPIDEM TARTRATE
     Indication: Product used for unknown indication
     Dosage: 5 MG, ONCE DAILY (1T1X)
     Route: 048

REACTIONS (2)
  - Nephropathy toxic [Recovered/Resolved]
  - Bradycardia [Recovered/Resolved]
